FAERS Safety Report 7980330-7 (Version None)
Quarter: 2011Q4

REPORT INFORMATION
  Report Type: 
  Country: None (occurrence: None)
  Receive Date: 20111214
  Receipt Date: 20111207
  Transmission Date: 20120403
  Serious: Yes (Death, Hospitalization, Other)
  Sender: FDA-Public Use
  Company Number: JP-CELGENEUS-087-50794-11121409

PATIENT
  Sex: Male
  Weight: 54 kg

DRUGS (24)
  1. VIDAZA [Suspect]
     Dosage: 110 MILLIGRAM
     Route: 058
     Dates: start: 20110516, end: 20110522
  2. VIDAZA [Suspect]
     Dosage: 110 MILLIGRAM
     Route: 058
     Dates: start: 20110726, end: 20110727
  3. ROZECLART [Concomitant]
     Dosage: 1 GRAM
     Route: 041
     Dates: start: 20110725, end: 20110725
  4. VIDAZA [Suspect]
     Dosage: 110 MILLIGRAM
     Route: 058
     Dates: start: 20110623, end: 20110630
  5. TRANSFUSION [Concomitant]
     Route: 041
  6. PURSENNID [Concomitant]
     Dosage: 24 MILLIGRAM
     Route: 048
     Dates: start: 20110519, end: 20110609
  7. ROXATIDINE ACETATE HCL [Concomitant]
     Dosage: 75 MILLIGRAM
     Route: 048
     Dates: start: 20110413, end: 20110508
  8. BACTRIM [Concomitant]
     Dosage: 8 DF
     Route: 048
     Dates: start: 20110618, end: 20110810
  9. FAMOSTAGINE [Concomitant]
     Dosage: 20 MILLIGRAM
     Route: 048
     Dates: start: 20110622, end: 20111028
  10. FLUCONAZOLE [Concomitant]
     Dosage: 100 MILLIGRAM
     Route: 048
     Dates: start: 20110721, end: 20110817
  11. PURSENNID [Concomitant]
     Dosage: 24 MILLIGRAM
     Route: 048
     Dates: start: 20110721, end: 20110730
  12. LEVOFLOXACIN [Concomitant]
     Dosage: 500 MILLIGRAM
     Route: 048
     Dates: start: 20110618, end: 20110810
  13. ROXATIDINE ACETATE HCL [Concomitant]
     Dosage: 75 MILLIGRAM
     Route: 048
     Dates: start: 20110516, end: 20110622
  14. KYTRIL [Concomitant]
     Dosage: 2 MILLIGRAM
     Route: 048
     Dates: start: 20110623, end: 20110630
  15. PURSENNID [Concomitant]
     Dosage: 24 MILLIGRAM
     Route: 048
     Dates: start: 20110418, end: 20110509
  16. ITRACONAZOLE [Concomitant]
     Dosage: 100 MILLIGRAM
     Route: 048
     Dates: start: 20110618, end: 20110701
  17. ROZECLART [Concomitant]
     Dosage: 2 GRAM
     Route: 041
     Dates: start: 20110726, end: 20110728
  18. VIDAZA [Suspect]
     Dosage: 100 MILLIGRAM
     Route: 058
     Dates: start: 20110415, end: 20110418
  19. KYTRIL [Concomitant]
     Dosage: 2 MILLIGRAM
     Route: 048
     Dates: start: 20110516, end: 20110522
  20. KYTRIL [Concomitant]
     Dosage: 2 MILLIGRAM
     Route: 048
     Dates: start: 20110726, end: 20110727
  21. VIDAZA [Suspect]
     Dosage: 110 MILLIGRAM
     Route: 058
     Dates: start: 20110419, end: 20110421
  22. RAMELTEON [Concomitant]
     Dosage: .1 MILLIGRAM
     Route: 048
     Dates: start: 20110415, end: 20110421
  23. PURSENNID [Concomitant]
     Dosage: 24 MILLIGRAM
     Route: 048
     Dates: start: 20110625, end: 20110710
  24. FLUCONAZOLE [Concomitant]
     Dosage: 100 MILLIGRAM
     Route: 048
     Dates: start: 20110702, end: 20110714

REACTIONS (9)
  - WHITE BLOOD CELL COUNT [None]
  - RED BLOOD CELL COUNT DECREASED [None]
  - WHITE BLOOD CELL COUNT DECREASED [None]
  - FEBRILE NEUTROPENIA [None]
  - HAEMOGLOBIN DECREASED [None]
  - PLATELET COUNT DECREASED [None]
  - MYELODYSPLASTIC SYNDROME [None]
  - NEUTROPHIL COUNT DECREASED [None]
  - CONSTIPATION [None]
